FAERS Safety Report 4582440-3 (Version None)
Quarter: 2005Q1

REPORT INFORMATION
  Report Type: 
  Country: None (occurrence: None)
  Receive Date: 20050127
  Receipt Date: 20041117
  Transmission Date: 20050727
  Serious: Yes (Hospitalization)
  Sender: FDA-Public Use
  Company Number: 386554

PATIENT
  Age: 18 Year
  Sex: Female

DRUGS (2)
  1. TORADOL [Suspect]
     Indication: HEADACHE
  2. TORADOL [Suspect]
     Indication: MIGRAINE

REACTIONS (2)
  - OLIGURIA [None]
  - RENAL FAILURE ACUTE [None]
